FAERS Safety Report 6529326-2 (Version None)
Quarter: 2010Q1

REPORT INFORMATION
  Report Type: 
  Country: None (occurrence: None)
  Receive Date: 20100107
  Receipt Date: 20100104
  Transmission Date: 20100710
  Serious: Yes (Death)
  Sender: FDA-Public Use
  Company Number: PHEH2009US17187

PATIENT
  Sex: Female

DRUGS (18)
  1. PARLODEL [Suspect]
     Indication: PITUITARY TUMOUR BENIGN
     Dosage: 5 MG/DAY
     Route: 048
  2. ZAROXOLYN [Concomitant]
     Dosage: 5 MG AS NEEDED AS DIRECTED BY PHYSICIAN
     Route: 048
  3. MYSOLINE [Concomitant]
     Dosage: 100 MG AT BEDTIME
     Route: 048
  4. VASOTEC [Concomitant]
     Dosage: 10 MG, QD
     Route: 048
  5. TOPROL-XL [Concomitant]
     Dosage: 100 MG, QD
  6. LANOXIN [Concomitant]
     Dosage: 0.25 MG, QD
     Route: 048
  7. LISINOPRIL [Concomitant]
     Dosage: 10 MG, QD
     Route: 048
  8. DILANTIN                                /AUS/ [Concomitant]
     Dosage: 400 MG, BID
     Route: 065
  9. CORTEF                                  /CAN/ [Concomitant]
     Dosage: 50 MG, QD
     Route: 048
  10. VICODIN [Concomitant]
     Dosage: 5MG/500MG TID PRN
     Route: 048
  11. BUMEX [Concomitant]
     Dosage: 2 MG, BID
     Route: 048
  12. PLAVIX [Concomitant]
     Dosage: 75 MG, QD
     Route: 048
  13. LYRICA [Concomitant]
     Dosage: 75 MG, TID
     Route: 048
  14. MACROBID [Concomitant]
     Dosage: 100 MG, QD
     Route: 048
  15. OXYBUTYNIN CHLORIDE [Concomitant]
     Dosage: 10 MG, QD
     Route: 048
  16. VALIUM [Concomitant]
     Dosage: 2 MG, TID PRN
     Route: 048
  17. DURAGESIC-100 [Concomitant]
     Dosage: 100 MCG/HR APPLIED TO UPPER TORSO AS DIRECTED EVERY 72 HRS AS NEEDED
  18. DURAGESIC-100 [Concomitant]
     Dosage: 25 MCG/HR APPLIED TO UPPER TORSO AS DIRECTED EVERY 72 HRS AS NEEDED

REACTIONS (4)
  - CARDIAC ARREST [None]
  - CARDIAC FAILURE CONGESTIVE [None]
  - PAIN [None]
  - VERTIGO [None]
